FAERS Safety Report 6192447-0 (Version None)
Quarter: 2009Q2

REPORT INFORMATION
  Report Type: 
  Country: None (occurrence: None)
  Receive Date: 20090518
  Receipt Date: 20090508
  Transmission Date: 20091009
  Serious: Yes (Other)
  Sender: FDA-Public Use
  Company Number: GB-ASTRAZENECA-2009GB01086

PATIENT
  Age: 65 Year
  Sex: Female
  Weight: 66.4 kg

DRUGS (8)
  1. OMEPRAZOLE [Suspect]
     Indication: HIATUS HERNIA
     Route: 048
  2. AMLODIPINE [Suspect]
     Indication: BLOOD PRESSURE
     Route: 048
  3. SERETIDE [Suspect]
     Indication: ASTHMA
     Route: 055
     Dates: start: 20040101
  4. SINGULAIR [Suspect]
     Indication: ASTHMA
     Route: 048
     Dates: start: 20080501
  5. VENTOLIN [Suspect]
     Indication: ASTHMA
     Route: 055
  6. DIHYDROCODEINE BITARTRATE INJ [Concomitant]
  7. TRIAMCINOLONE [Concomitant]
  8. UNKNOWN DRUG [Concomitant]
     Indication: GASTROINTESTINAL DISORDER

REACTIONS (4)
  - ASTHMA [None]
  - COUGH [None]
  - DYSPNOEA [None]
  - INCREASED UPPER AIRWAY SECRETION [None]
